FAERS Safety Report 8329959-7 (Version None)
Quarter: 2012Q2

REPORT INFORMATION
  Report Type: 
  Country: None (occurrence: None)
  Receive Date: 20120502
  Receipt Date: 20120430
  Transmission Date: 20120825
  Serious: Yes (Life-Threatening, Hospitalization)
  Sender: FDA-Public Use
  Company Number: IL-JNJFOC-2004090756

PATIENT
  Sex: Female

DRUGS (2)
  1. ACETAMINOPHEN [Suspect]
     Indication: OROPHARYNGEAL PAIN
     Dosage: DAILY DOSE TEXT: 3 DOSES OF 10 MG/KG
     Route: 048
     Dates: start: 19970129
  2. ACETAMINOPHEN [Suspect]
     Indication: PYREXIA
     Dosage: DAILY DOSE TEXT: 3 DOSES OF 10 MG/KG
     Route: 048
     Dates: start: 19970129

REACTIONS (2)
  - TOXIC EPIDERMAL NECROLYSIS [None]
  - SKIN FISSURES [None]
